FAERS Safety Report 6515525-2 (Version None)
Quarter: 2009Q4

REPORT INFORMATION
  Report Type: 
  Country: None (occurrence: None)
  Receive Date: 20091223
  Receipt Date: 20091221
  Transmission Date: 20100525
  Serious: Yes (Death, Hospitalization, Other)
  Sender: FDA-Public Use
  Company Number: PHHO2006AR14848

PATIENT
  Sex: Male
  Weight: 85.9 kg

DRUGS (6)
  1. VALSARTAN [Suspect]
     Indication: CARDIOVASCULAR DISORDER
     Dosage: LEVEL 1
     Route: 048
     Dates: start: 20030602
  2. VALSARTAN [Suspect]
     Dosage: LEVEL 2
     Route: 048
  3. VALSARTAN [Suspect]
     Dosage: LEVEL 2
     Route: 048
     Dates: start: 20060925, end: 20080803
  4. STARLIX [Suspect]
     Indication: GLUCOSE TOLERANCE IMPAIRED
     Dosage: LEVEL 1
     Route: 048
     Dates: start: 20030602
  5. STARLIX [Suspect]
     Dosage: LEVEL 2
     Route: 048
  6. STARLIX [Suspect]
     Dosage: LEVEL 2
     Route: 048
     Dates: start: 20060925, end: 20080803

REACTIONS (36)
  - ACUTE ABDOMEN [None]
  - ACUTE CORONARY SYNDROME [None]
  - ANAEMIA [None]
  - ANGINA PECTORIS [None]
  - ASTHENIA [None]
  - ATRIAL FIBRILLATION [None]
  - CAROTID ARTERY DISEASE [None]
  - CHEST PAIN [None]
  - CHEST TUBE INSERTION [None]
  - COLECTOMY [None]
  - DIZZINESS [None]
  - DYSPNOEA [None]
  - ELECTROCARDIOGRAM ST SEGMENT DEPRESSION [None]
  - ELECTROCARDIOGRAM ST SEGMENT ELEVATION [None]
  - ELECTROCARDIOGRAM T WAVE INVERSION [None]
  - EMPYEMA [None]
  - EPIDIDYMITIS [None]
  - GASTROINTESTINAL ANGIODYSPLASIA [None]
  - HAEMORRHOIDS [None]
  - HAEMOTHORAX [None]
  - HYPERKALAEMIA [None]
  - INTERMITTENT CLAUDICATION [None]
  - INTESTINAL ISCHAEMIA [None]
  - INTESTINAL RESECTION [None]
  - PLEURAL DECORTICATION [None]
  - PLEURAL EFFUSION [None]
  - PNEUMONIA [None]
  - PROTEINURIA [None]
  - PYREXIA [None]
  - RENAL FAILURE ACUTE [None]
  - RENAL FAILURE CHRONIC [None]
  - SPIROMETRY ABNORMAL [None]
  - STAPHYLOCOCCAL INFECTION [None]
  - SUDDEN DEATH [None]
  - TESTICULAR PAIN [None]
  - TINNITUS [None]
